FAERS Safety Report 9122698 (Version 1)
Quarter: 2013Q1

REPORT INFORMATION
  Report Type: Spontaneous
  Country: US (occurrence: None)
  Receive Date: 20130225
  Receipt Date: 20130225
  Transmission Date: 20140127
  Serious: Yes (Life-Threatening, Hospitalization, Disabling)
  Sender: FDA-Public Use
  Company Number: None

PATIENT
  Age: 58 Year
  Sex: Male
  Weight: 79.38 kg

DRUGS (1)
  1. CELESTONE [Suspect]
     Indication: NECK PAIN
     Dosage: NECK INTERLAMINAR INJECTI
     Dates: start: 20130121, end: 20130121

REACTIONS (19)
  - Infection [None]
  - Sleep disorder [None]
  - Cushing^s syndrome [None]
  - Intraocular pressure increased [None]
  - Nervous system disorder [None]
  - Muscle disorder [None]
  - Blindness transient [None]
  - Pulmonary oedema [None]
  - Muscular weakness [None]
  - Convulsion [None]
  - Vertigo [None]
  - Headache [None]
  - Vomiting [None]
  - Hypersensitivity [None]
  - Confusional state [None]
  - Mental disorder [None]
  - Personality change [None]
  - Myalgia [None]
  - Mood altered [None]
